FAERS Safety Report 20141989 (Version 7)
Quarter: 2022Q3

REPORT INFORMATION
  Report Type: Report from Study
  Country: US (occurrence: US)
  Receive Date: 20211202
  Receipt Date: 20220825
  Transmission Date: 20221026
  Serious: Yes (Other)
  Sender: FDA-Public Use
  Company Number: US-BIOGEN-2021BI01071126

PATIENT
  Age: 38 Year
  Sex: Female
  Weight: 111.23 kg

DRUGS (23)
  1. VUMERITY [Suspect]
     Active Substance: DIROXIMEL FUMARATE
     Indication: Multiple sclerosis
     Dosage: STARTING DOSE, FOR 7 DAYS
     Route: 050
     Dates: start: 202011
  2. VUMERITY [Suspect]
     Active Substance: DIROXIMEL FUMARATE
     Dosage: MAINTENANCE DOSE
     Route: 050
     Dates: start: 20201123, end: 202110
  3. VUMERITY [Suspect]
     Active Substance: DIROXIMEL FUMARATE
     Route: 050
     Dates: start: 202012
  4. VUMERITY [Suspect]
     Active Substance: DIROXIMEL FUMARATE
     Dosage: STARTING DOSE
     Route: 050
     Dates: start: 20201123
  5. VUMERITY [Suspect]
     Active Substance: DIROXIMEL FUMARATE
     Dosage: MAINTENANCE DOSE
     Route: 050
     Dates: end: 202012
  6. VUMERITY [Suspect]
     Active Substance: DIROXIMEL FUMARATE
     Dosage: STARTING DOSE
     Route: 050
  7. VUMERITY [Suspect]
     Active Substance: DIROXIMEL FUMARATE
     Dosage: MAINTENANCE DOSE
     Route: 050
  8. VUMERITY [Suspect]
     Active Substance: DIROXIMEL FUMARATE
     Route: 050
     Dates: start: 20201123, end: 202112
  9. VUMERITY [Suspect]
     Active Substance: DIROXIMEL FUMARATE
     Dosage: STARTING DOSE
     Route: 050
     Dates: start: 20201123, end: 20201129
  10. VUMERITY [Suspect]
     Active Substance: DIROXIMEL FUMARATE
     Dosage: MAINTENANCE DOSE
     Route: 050
     Dates: start: 20201129, end: 20211004
  11. VUMERITY [Suspect]
     Active Substance: DIROXIMEL FUMARATE
     Dosage: STARTING DOSE
     Route: 050
     Dates: start: 20220320, end: 20220326
  12. VUMERITY [Suspect]
     Active Substance: DIROXIMEL FUMARATE
     Dosage: MAINTENANCE DOSE
     Route: 050
     Dates: start: 20220327
  13. VUMERITY [Suspect]
     Active Substance: DIROXIMEL FUMARATE
     Route: 050
     Dates: start: 20201123
  14. VUMERITY [Suspect]
     Active Substance: DIROXIMEL FUMARATE
     Dosage: MAINTENANCE DOSE
     Route: 050
     Dates: start: 20220411
  15. ESTARYLLA [Concomitant]
     Active Substance: ETHINYL ESTRADIOL\NORGESTIMATE
     Indication: Product used for unknown indication
     Dosage: 0.25 MG - 35 MCG
     Route: 050
  16. LEVOCETIRIZINE [Concomitant]
     Active Substance: LEVOCETIRIZINE
     Indication: Product used for unknown indication
     Route: 050
  17. OMEGA-3 FATTY ACIDS [Concomitant]
     Active Substance: OMEGA-3 FATTY ACIDS
     Indication: Product used for unknown indication
     Route: 050
  18. EFFEXOR [Concomitant]
     Active Substance: VENLAFAXINE HYDROCHLORIDE
     Indication: Anxiety
     Dosage: INCREASED TO 150 MG WITH BENEFIT
     Route: 050
     Dates: start: 202002
  19. EFFEXOR [Concomitant]
     Active Substance: VENLAFAXINE HYDROCHLORIDE
     Route: 050
  20. VITAMIN D [Concomitant]
     Active Substance: VITAMIN D NOS
     Indication: Product used for unknown indication
     Dosage: 5000 IU DAILY
     Route: 050
  21. VITAMIN D [Concomitant]
     Active Substance: VITAMIN D NOS
     Route: 050
  22. VENLAFAXINE [Concomitant]
     Active Substance: VENLAFAXINE HYDROCHLORIDE
     Indication: Product used for unknown indication
     Dosage: EXTENDED RELEASE 24 HR
     Route: 050
  23. VITAMIN B12 [Concomitant]
     Active Substance: CYANOCOBALAMIN
     Indication: Product used for unknown indication
     Route: 050

REACTIONS (1)
  - Breast cancer stage III [Recovered/Resolved]

NARRATIVE: CASE EVENT DATE: 20210801
